FAERS Safety Report 18816698 (Version 1)
Quarter: 2021Q1

REPORT INFORMATION
  Report Type: Spontaneous
  Country: GB (occurrence: GB)
  Receive Date: 20210201
  Receipt Date: 20210201
  Transmission Date: 20210419
  Serious: Yes (Disabling)
  Sender: FDA-Public Use
  Company Number: GB-ACCORD-216012

PATIENT
  Age: 53 Year
  Sex: Female

DRUGS (7)
  1. SERTRALINE [Suspect]
     Active Substance: SERTRALINE HYDROCHLORIDE
     Indication: PRODUCT USED FOR UNKNOWN INDICATION
     Route: 048
     Dates: start: 20210107, end: 20210110
  2. LACTULOSE. [Concomitant]
     Active Substance: LACTULOSE
  3. PROPRANOLOL [Concomitant]
     Active Substance: PROPRANOLOL HYDROCHLORIDE
  4. CODEINE [Concomitant]
     Active Substance: CODEINE
  5. PROMETHAZINE [Concomitant]
     Active Substance: PROMETHAZINE HYDROCHLORIDE
  6. CARBIMAZOLE [Concomitant]
     Active Substance: CARBIMAZOLE
  7. MORPHINE [Concomitant]
     Active Substance: MORPHINE

REACTIONS (2)
  - Medication error [Unknown]
  - Pain [Recovered/Resolved with Sequelae]

NARRATIVE: CASE EVENT DATE: 20210107
